FAERS Safety Report 10369824 (Version 1)
Quarter: 2014Q3

REPORT INFORMATION
  Report Type: Spontaneous
  Country: US (occurrence: US)
  Receive Date: 20140808
  Receipt Date: 20140808
  Transmission Date: 20150326
  Serious: Yes (Other)
  Sender: FDA-Public Use
  Company Number: US-ASTRAZENECA-2014SE55775

PATIENT
  Age: 54 Year
  Sex: Female
  Weight: 64.9 kg

DRUGS (4)
  1. MELATONIN [Concomitant]
     Active Substance: MELATONIN
  2. ESOMEPRAZOLE MAGNESIUM. [Suspect]
     Active Substance: ESOMEPRAZOLE MAGNESIUM
     Route: 048
     Dates: start: 20140523, end: 201407
  3. COREG CR [Concomitant]
     Active Substance: CARVEDILOL PHOSPHATE
     Dosage: 10
  4. PEPCID [Concomitant]
     Active Substance: FAMOTIDINE

REACTIONS (22)
  - Intracranial aneurysm [Unknown]
  - Tremor [Unknown]
  - Throat tightness [Unknown]
  - Drug intolerance [Unknown]
  - Poor quality sleep [Unknown]
  - Blister [Unknown]
  - Anaphylactic shock [Unknown]
  - Swollen tongue [Unknown]
  - Tooth loss [Unknown]
  - Oedema peripheral [Unknown]
  - Skin haemorrhage [Unknown]
  - Visual acuity reduced [Unknown]
  - Insomnia [Unknown]
  - Drug clearance decreased [Unknown]
  - Memory impairment [Unknown]
  - Pharyngeal oedema [Unknown]
  - Hypoaesthesia oral [Unknown]
  - Dyspnoea [Unknown]
  - Hypoaesthesia [Unknown]
  - Skin fissures [Unknown]
  - Dysphagia [Unknown]
  - Pyrexia [Unknown]
